FAERS Safety Report 8854584 (Version 2)
Quarter: 2013Q1

REPORT INFORMATION
  Report Type: Spontaneous
  Country: US (occurrence: US)
  Receive Date: 20121023
  Receipt Date: 20130329
  Transmission Date: 20140127
  Serious: No
  Sender: FDA-Public Use
  Company Number: US-009507513-1208USA010791

PATIENT
  Age: 56 None
  Sex: Male
  Weight: 78.5 kg

DRUGS (5)
  1. VICTRELIS [Suspect]
     Indication: HEPATITIS C
     Dosage: 800 MG, Q8H
     Route: 048
     Dates: start: 20120413, end: 20120831
  2. REBETOL [Suspect]
     Indication: HEPATITIS C
     Dosage: 1200 MG, BID
     Route: 048
     Dates: start: 20120413, end: 20120831
  3. LISINOPRIL [Concomitant]
     Indication: HYPERTENSION
     Dosage: 40 MG DAILY
     Route: 048
  4. OMEPRAZOLE [Concomitant]
     Dosage: UNK
  5. HYDRALAZINE [Concomitant]
     Indication: HYPERTENSION
     Dosage: 75 MG DAILY
     Route: 048

REACTIONS (7)
  - Pruritus [Unknown]
  - Feeling abnormal [Unknown]
  - Headache [Unknown]
  - Memory impairment [Recovered/Resolved]
  - Apathy [Recovered/Resolved]
  - Depressed mood [Recovered/Resolved]
  - Disturbance in attention [Recovered/Resolved]
